FAERS Safety Report 9224087 (Version 2)
Quarter: 2013Q3

REPORT INFORMATION
  Report Type: Spontaneous
  Country: FR (occurrence: FR)
  Receive Date: 20130411
  Receipt Date: 20130828
  Transmission Date: 20140515
  Serious: Yes (Hospitalization)
  Sender: FDA-Public Use
  Company Number: FR-PFIZER INC-2013106477

PATIENT
  Age: 52 Year
  Sex: Male
  Weight: 70 kg

DRUGS (3)
  1. SOLU-MEDROL [Suspect]
     Dosage: 1 G
     Route: 042
     Dates: start: 20130226, end: 20130226
  2. SOLU-MEDROL [Suspect]
     Dosage: 2MG, PROGRESSIVE UNTIL 20MG
     Dates: start: 2013
  3. CELLCEPT [Concomitant]
     Dosage: 1500 MG, 1X/DAY (STRENGTH 500MG)
     Route: 048

REACTIONS (8)
  - Anaphylactoid reaction [Recovered/Resolved]
  - Erythrosis [Recovered/Resolved]
  - Abdominal pain upper [Recovered/Resolved]
  - Paraesthesia [Recovered/Resolved]
  - Nausea [Recovered/Resolved]
  - Chest discomfort [Recovered/Resolved]
  - Pruritus [Recovered/Resolved]
  - Vomiting [Recovered/Resolved]
